FAERS Safety Report 7549822-9 (Version None)
Quarter: 2011Q2

REPORT INFORMATION
  Report Type: 
  Country: None (occurrence: None)
  Receive Date: 20110615
  Receipt Date: 20110609
  Transmission Date: 20111010
  Serious: Yes (Death)
  Sender: FDA-Public Use
  Company Number: JP-MERCK-1104USA00725

PATIENT
  Age: 43 Year
  Sex: Male

DRUGS (26)
  1. PRIMPERAN TAB [Concomitant]
     Route: 042
     Dates: start: 20110302, end: 20110302
  2. ALFAROL [Concomitant]
     Route: 048
     Dates: start: 20080101
  3. SCOPOLAMINE [Concomitant]
     Route: 048
     Dates: start: 20110421, end: 20110525
  4. FRAGMIN [Concomitant]
     Route: 042
     Dates: start: 20080101
  5. NOROXIN [Suspect]
     Indication: ENTERITIS INFECTIOUS
     Route: 048
     Dates: start: 20110305, end: 20110311
  6. ADALAT CC [Concomitant]
     Route: 048
  7. CALCIUM CARBONATE [Concomitant]
     Route: 048
     Dates: start: 20080101, end: 20110422
  8. SOLITA T-1 [Concomitant]
     Route: 065
     Dates: start: 20110302, end: 20110302
  9. ASPIRIN [Concomitant]
     Route: 048
     Dates: start: 20080101, end: 20110429
  10. CATAPRES [Concomitant]
     Route: 048
     Dates: start: 20090124, end: 20110415
  11. PURSENNID [Concomitant]
     Route: 048
     Dates: start: 20080101
  12. RENAGEL [Concomitant]
     Route: 048
     Dates: start: 20080101, end: 20110423
  13. RABEPRAZOLE SODIUM [Concomitant]
     Route: 048
     Dates: start: 20110421, end: 20110525
  14. ADALAT CC [Concomitant]
     Route: 048
     Dates: start: 20080101, end: 20110510
  15. LASIX [Concomitant]
     Route: 048
     Dates: start: 20100306
  16. KAYTWO [Concomitant]
     Route: 042
     Dates: start: 20110420, end: 20110525
  17. CALCICOL [Concomitant]
     Dosage: 2A-3A DAY
     Route: 042
     Dates: start: 20110422
  18. SODIUM CHLORIDE [Concomitant]
     Route: 042
     Dates: start: 20110420, end: 20110525
  19. FRAGMIN [Concomitant]
     Route: 042
     Dates: start: 20110422
  20. NOROXIN [Suspect]
     Indication: PYREXIA
     Route: 048
     Dates: start: 20110305, end: 20110311
  21. EURODIN [Concomitant]
     Route: 048
     Dates: start: 20080101
  22. URSO 250 [Concomitant]
     Route: 048
     Dates: start: 20110421, end: 20110525
  23. LACTULOSE [Concomitant]
     Route: 048
     Dates: start: 20110421, end: 20110525
  24. OLMESARTAN MEDOXOMIL [Concomitant]
     Route: 048
     Dates: start: 20100107, end: 20110510
  25. PRIMPERAN TAB [Concomitant]
     Route: 048
     Dates: start: 20110302, end: 20110305
  26. BIOFERMIN [Concomitant]
     Route: 048
     Dates: start: 20110302, end: 20110305

REACTIONS (3)
  - ASCITES [None]
  - HEPATITIS FULMINANT [None]
  - HEPATIC ATROPHY [None]
